FAERS Safety Report 21280284 (Version 2)
Quarter: 2022Q3

REPORT INFORMATION
  Report Type: Spontaneous
  Country: US (occurrence: US)
  Receive Date: 20220901
  Receipt Date: 20220906
  Transmission Date: 20221026
  Serious: No
  Sender: FDA-Public Use
  Company Number: US-PFIZER INC-202201065160

PATIENT
  Sex: Female

DRUGS (2)
  1. BICILLIN L-A [Suspect]
     Active Substance: PENICILLIN G BENZATHINE
     Dosage: 2 ML, (1,200,000U 2ML X 10)
  2. BICILLIN L-A [Suspect]
     Active Substance: PENICILLIN G BENZATHINE
     Dosage: 2 ML, (1,200,000U 2ML X 10)

REACTIONS (2)
  - Poor quality product administered [Unknown]
  - Syringe issue [Unknown]
